FAERS Safety Report 7929510-7 (Version None)
Quarter: 2011Q4

REPORT INFORMATION
  Report Type: 
  Country: None (occurrence: None)
  Receive Date: 20111121
  Receipt Date: 20111110
  Transmission Date: 20120403
  Serious: Yes (Other)
  Sender: FDA-Public Use
  Company Number: CA-ELI_LILLY_AND_COMPANY-CA201111003365

PATIENT
  Sex: Male

DRUGS (12)
  1. ACETAMINOPHEN [Concomitant]
     Dosage: 325 MG, PRN
  2. RIVASA [Concomitant]
  3. ZYPREXA [Suspect]
     Indication: SCHIZOAFFECTIVE DISORDER
     Dosage: 15 MG, EACH EVENING
  4. CLOPIXOL ACUPHASE [Concomitant]
  5. CODEINE SUL TAB [Concomitant]
     Dosage: 30 MG, PRN
  6. ZYPREXA [Suspect]
     Dosage: 10 MG, EACH EVENING
  7. LORAZEPAM [Concomitant]
  8. LOVENOX [Concomitant]
  9. LITHIUM CARBONATE [Concomitant]
  10. ZYPREXA [Suspect]
     Dosage: 5 MG, EACH EVENING
  11. SEROQUEL [Concomitant]
  12. COGENTIN [Concomitant]

REACTIONS (9)
  - INJURY [None]
  - DRUG INEFFECTIVE [None]
  - FRACTURE [None]
  - BLOOD CHOLESTEROL INCREASED [None]
  - DIABETES MELLITUS [None]
  - BLOOD TRIGLYCERIDES INCREASED [None]
  - SUICIDE ATTEMPT [None]
  - GENERAL PHYSICAL HEALTH DETERIORATION [None]
  - HYPERGLYCAEMIA [None]
